FAERS Safety Report 8832442 (Version 1)
Quarter: 2012Q4

REPORT INFORMATION
  Report Type: Spontaneous
  Country: GB (occurrence: None)
  Receive Date: 20121005
  Receipt Date: 20121005
  Transmission Date: 20130627
  Serious: Yes (Life-Threatening, Other)
  Sender: FDA-Public Use
  Company Number: COL_12393_2012

PATIENT
  Age: 48 Year
  Sex: Female
  Weight: 88.9 kg

DRUGS (6)
  1. PERIOGARD [Suspect]
     Indication: ORAL INFECTION
     Route: 048
     Dates: start: 20120901, end: 20120901
  2. EPIPEN [Concomitant]
  3. FLUOXETIN [Concomitant]
  4. METRONIDAZOLE [Concomitant]
  5. NAPROXEN [Concomitant]
  6. TOPIRAMATE [Concomitant]

REACTIONS (4)
  - Swollen tongue [None]
  - Lip swelling [None]
  - Hypoaesthesia [None]
  - Anaphylactic reaction [None]
